FAERS Safety Report 7448034-7 (Version None)
Quarter: 2011Q2

REPORT INFORMATION
  Report Type: 
  Country: None (occurrence: None)
  Receive Date: 20110429
  Receipt Date: 20100322
  Transmission Date: 20111010
  Serious: No
  Sender: FDA-Public Use
  Company Number: US-ASTRAZENECA-2010SE12554

PATIENT
  Age: 52 Year
  Sex: Female
  Weight: 59.9 kg

DRUGS (3)
  1. PRILOSEC [Suspect]
     Dosage: DAILY
     Route: 048
  2. EVISTA [Concomitant]
  3. NEXIUM [Suspect]
     Indication: EROSIVE OESOPHAGITIS
     Route: 048

REACTIONS (3)
  - DYSPEPSIA [None]
  - DIZZINESS [None]
  - FEELING ABNORMAL [None]
